FAERS Safety Report 12991869 (Version 18)
Quarter: 2018Q4

REPORT INFORMATION
  Report Type: Report from Study
  Country: US (occurrence: US)
  Receive Date: 20161201
  Receipt Date: 20181025
  Transmission Date: 20190204
  Serious: Yes (Hospitalization)
  Sender: FDA-Public Use
  Company Number: US-ACTELION-A-NJ2016-146151

PATIENT
  Age: 69 Year
  Sex: Female
  Weight: 67.57 kg

DRUGS (12)
  1. COUMADIN [Concomitant]
     Active Substance: WARFARIN SODIUM
  2. ELIQUIS [Concomitant]
     Active Substance: APIXABAN
  3. UPTRAVI [Suspect]
     Active Substance: SELEXIPAG
     Dosage: UNK
     Route: 048
     Dates: start: 201712
  4. UPTRAVI [Suspect]
     Active Substance: SELEXIPAG
     Dosage: UNK
     Route: 048
     Dates: start: 20160415
  5. TRACLEER [Suspect]
     Active Substance: BOSENTAN
     Dosage: 125 MG, BID
     Route: 048
  6. UPTRAVI [Suspect]
     Active Substance: SELEXIPAG
     Indication: PULMONARY HYPERTENSION
     Dosage: 1200 MCG, QD
     Route: 048
  7. UPTRAVI [Suspect]
     Active Substance: SELEXIPAG
     Dosage: 400 MCG, BID
     Route: 048
  8. UPTRAVI [Suspect]
     Active Substance: SELEXIPAG
     Dosage: 1000 MCG, QAM, 800 MCG, QPM
     Route: 048
  9. UPTRAVI [Suspect]
     Active Substance: SELEXIPAG
     Dosage: 600MCG IN AM AND 400MCG IN PM
     Route: 048
  10. UPTRAVI [Suspect]
     Active Substance: SELEXIPAG
     Dosage: 600 MCG, BID
     Route: 048
  11. UPTRAVI [Suspect]
     Active Substance: SELEXIPAG
     Dosage: 200 MCG, BID
     Route: 048
  12. TRACLEER [Suspect]
     Active Substance: BOSENTAN
     Indication: PULMONARY HYPERTENSION
     Dosage: 125 MG, BID
     Route: 048
     Dates: start: 20110207

REACTIONS (33)
  - Extrasystoles [Unknown]
  - Pain [Unknown]
  - Bladder disorder [Unknown]
  - Incorrect dosage administered [Unknown]
  - Pulmonary arterial hypertension [Unknown]
  - Heart rate decreased [Unknown]
  - Heart rate irregular [Unknown]
  - Fluid retention [Unknown]
  - Cerebrovascular accident [Unknown]
  - Headache [Unknown]
  - Drug hypersensitivity [Unknown]
  - Insomnia [Unknown]
  - Ventricular extrasystoles [Unknown]
  - Arterial thrombosis [Unknown]
  - Feeling abnormal [Unknown]
  - Dyspepsia [Unknown]
  - Urinary tract infection [Unknown]
  - Palpitations [Unknown]
  - Nail bed disorder [Unknown]
  - Constipation [Unknown]
  - Energy increased [Recovered/Resolved]
  - Fatigue [Unknown]
  - Tachycardia [Unknown]
  - Heart rate abnormal [Unknown]
  - Myocardial infarction [Unknown]
  - Muscle spasms [Unknown]
  - Pulmonary embolism [Unknown]
  - Embolism [Unknown]
  - Pulmonary artery thrombosis [Unknown]
  - Pneumonia viral [Unknown]
  - Vision blurred [Recovered/Resolved]
  - Rash [Recovered/Resolved]
  - Hair disorder [Unknown]

NARRATIVE: CASE EVENT DATE: 20161108
